FAERS Safety Report 7336067-0 (Version None)
Quarter: 2011Q1

REPORT INFORMATION
  Report Type: 
  Country: None (occurrence: None)
  Receive Date: 20110301
  Receipt Date: 20110301
  Transmission Date: 20110831
  Serious: Yes (Hospitalization)
  Sender: FDA-Public Use
  Company Number: None

PATIENT
  Age: 87 Year
  Sex: Male
  Weight: 61 kg

DRUGS (1)
  1. LISINOPRIL [Suspect]
     Indication: HYPERTENSION
     Dosage: 40 MG EVERY DAY PO
     Route: 048
     Dates: start: 20090617, end: 20101223

REACTIONS (6)
  - URTICARIA [None]
  - AGITATION [None]
  - ANAPHYLACTIC REACTION [None]
  - AGGRESSION [None]
  - DISORIENTATION [None]
  - MENTAL STATUS CHANGES [None]
